FAERS Safety Report 13473053 (Version 1)
Quarter: 2017Q2

REPORT INFORMATION
  Report Type: Spontaneous
  Country: DE (occurrence: DE)
  Receive Date: 20170424
  Receipt Date: 20170424
  Transmission Date: 20170830
  Serious: Yes (Other)
  Sender: FDA-Public Use
  Company Number: DE-DSJP-DSE-2017-112719

PATIENT

DRUGS (4)
  1. RAMIPRIL. [Concomitant]
     Active Substance: RAMIPRIL
     Indication: BLOOD PRESSURE ABNORMAL
     Dosage: 2.5 MG, QD
  2. ATORVASTATIN [Concomitant]
     Active Substance: ATORVASTATIN
     Indication: LIPID METABOLISM DISORDER
     Dosage: 40 MG, QD
     Route: 048
  3. EPLERENONE. [Concomitant]
     Active Substance: EPLERENONE
     Indication: CARDIAC FAILURE
     Dosage: 25 MG, QD
  4. LIXIANA [Suspect]
     Active Substance: EDOXABAN TOSYLATE
     Indication: ATRIAL TACHYCARDIA
     Dosage: 60 MG, QD
     Route: 048
     Dates: end: 201704

REACTIONS (1)
  - Thrombocytopenia [Recovering/Resolving]

NARRATIVE: CASE EVENT DATE: 20170224
